FAERS Safety Report 5213391-9 (Version None)
Quarter: 2007Q1

REPORT INFORMATION
  Report Type: 
  Country: None (occurrence: None)
  Receive Date: 20070119
  Receipt Date: 20061025
  Transmission Date: 20070707
  Serious: No
  Sender: FDA-Public Use
  Company Number: US-GLAXOSMITHKLINE-A0624910A

PATIENT
  Sex: Male

DRUGS (4)
  1. ARIXTRA [Suspect]
     Dosage: 7.5MG PER DAY
     Route: 058
     Dates: start: 20060901
  2. LEVAQUIN [Concomitant]
  3. FLAGYL [Concomitant]
  4. ZOSYN [Concomitant]

REACTIONS (1)
  - PLATELET COUNT DECREASED [None]
